FAERS Safety Report 4663849-6 (Version None)
Quarter: 2005Q2

REPORT INFORMATION
  Report Type: 
  Country: None (occurrence: None)
  Receive Date: 20050516
  Receipt Date: 20050429
  Transmission Date: 20051028
  Serious: Yes (Hospitalization)
  Sender: FDA-Public Use
  Company Number: DSA_26401_2005

PATIENT
  Age: 80 Year
  Sex: Female

DRUGS (10)
  1. ENALAPRIL MALEATE [Suspect]
     Indication: HYPERTENSION
     Dosage: 10 MG Q DAY PO
     Route: 048
     Dates: start: 20040515, end: 20050107
  2. ENALAPRIL MALEATE [Suspect]
     Indication: ISCHAEMIC CARDIOMYOPATHY
     Dosage: 10 MG Q DAY PO
     Route: 048
     Dates: start: 20040515, end: 20050107
  3. ENALAPRIL MALEATE [Suspect]
     Indication: HYPERTENSION
     Dosage: 5 MG Q DAY PO
     Route: 048
     Dates: start: 20050112, end: 20050130
  4. ENALAPRIL MALEATE [Suspect]
     Indication: ISCHAEMIC CARDIOMYOPATHY
     Dosage: 5 MG Q DAY PO
     Route: 048
     Dates: start: 20050112, end: 20050130
  5. SPIRONOLACTONE [Suspect]
     Indication: HYPERTENSION
     Dosage: 25 MG Q DAY PO
     Route: 048
     Dates: start: 20040515, end: 20050107
  6. SPIRONOLACTONE [Suspect]
     Indication: ISCHAEMIC CARDIOMYOPATHY
     Dosage: 25 MG Q DAY PO
     Route: 048
     Dates: start: 20040515, end: 20050107
  7. BISOPROLOL FUMARATE [Concomitant]
  8. CLOPIDOGREL BISULFATE [Concomitant]
  9. FUROSEMIDE [Concomitant]
  10. OMEPRAZOLE [Concomitant]

REACTIONS (4)
  - DEHYDRATION [None]
  - HYPERKALAEMIA [None]
  - OEDEMA PERIPHERAL [None]
  - RENAL FAILURE ACUTE [None]
